FAERS Safety Report 15576084 (Version 1)
Quarter: 2018Q4

REPORT INFORMATION
  Report Type: Spontaneous
  Country: FR (occurrence: FR)
  Receive Date: 20181101
  Receipt Date: 20181101
  Transmission Date: 20190205
  Serious: Yes (Hospitalization)
  Sender: FDA-Public Use
  Company Number: FR-MYLANLABS-2018M1081768

PATIENT
  Age: 14 Year
  Sex: Male

DRUGS (4)
  1. TERCIAN                            /00759301/ [Suspect]
     Active Substance: CYAMEMAZINE
     Indication: ANXIETY
     Dosage: UNK
     Route: 048
     Dates: start: 2016, end: 20180118
  2. ALPRAZOLAM. [Suspect]
     Active Substance: ALPRAZOLAM
     Indication: COGNITIVE DISORDER
     Dosage: 0.5 DF, TID, (1/2 TABLET IN THE MORNING, 1/2 TABLET AT NOON AND 1 TABLET IN THE EVENING )
     Route: 048
  3. OLANZAPINE. [Suspect]
     Active Substance: OLANZAPINE
     Indication: COGNITIVE DISORDER
     Dosage: 1 DF, QD
     Route: 048
     Dates: start: 20180110, end: 20180118
  4. RISPERDAL [Suspect]
     Active Substance: RISPERIDONE
     Indication: COGNITIVE DISORDER
     Dosage: UNK
     Route: 048
     Dates: start: 2016, end: 20180110

REACTIONS (2)
  - Hypothermia [Recovered/Resolved]
  - Product administered to patient of inappropriate age [Recovered/Resolved]
